FAERS Safety Report 21273441 (Version 1)
Quarter: 2022Q3

REPORT INFORMATION
  Report Type: Spontaneous
  Country: US (occurrence: None)
  Receive Date: 20220830
  Receipt Date: 20220830
  Transmission Date: 20221026
  Serious: Yes (Death)
  Sender: FDA-Public Use
  Company Number: None

PATIENT
  Age: 71 Year
  Sex: Male

DRUGS (1)
  1. BOTOX [Suspect]
     Active Substance: ONABOTULINUMTOXINA
     Dosage: FREQUENCY: OTHER
     Route: 030
     Dates: start: 202202, end: 202207

REACTIONS (1)
  - Death [None]

NARRATIVE: CASE EVENT DATE: 20220712
